FAERS Safety Report 20818176 (Version 1)
Quarter: 2022Q2

REPORT INFORMATION
  Report Type: Spontaneous
  Country: US (occurrence: US)
  Receive Date: 20220512
  Receipt Date: 20220512
  Transmission Date: 20220721
  Serious: No
  Sender: FDA-Public Use
  Company Number: US-PFIZER INC-2020248070

PATIENT
  Age: 66 Year
  Sex: Male
  Weight: 82.55 kg

DRUGS (3)
  1. XELJANZ [Suspect]
     Active Substance: TOFACITINIB CITRATE
     Indication: Chronic leukaemia
     Dosage: 5 MG, 2X/DAY (UNKNOWN DOSE. WILL BE TAKING A PILL IN THE MORNING AND AT NIGHT)
  2. XELJANZ [Suspect]
     Active Substance: TOFACITINIB CITRATE
     Indication: Rheumatoid arthritis
  3. FOLIC ACID [Concomitant]
     Active Substance: FOLIC ACID
     Indication: White blood cell count decreased
     Dosage: 1 MG, DAILY
     Dates: start: 20200306

REACTIONS (1)
  - Therapeutic response unexpected [Unknown]
